FAERS Safety Report 9276278 (Version 1)
Quarter: 2013Q1

REPORT INFORMATION
  Report Type: Spontaneous
  Country: US (occurrence: None)
  Receive Date: 20121109
  Receipt Date: 20121109
  Transmission Date: 20140127
  Serious: Yes (Other)
  Sender: FDA-Public Use
  Company Number: 2012S1000571

PATIENT
  Age: 35 Year
  Sex: Female

DRUGS (1)
  1. CUBICIN [Suspect]

REACTIONS (2)
  - VIIth nerve paralysis [None]
  - Photophobia [None]
